FAERS Safety Report 8878882 (Version 7)
Quarter: 2013Q1

REPORT INFORMATION
  Report Type: Report from Study
  Country: CA (occurrence: CA)
  Receive Date: 20121026
  Receipt Date: 20130308
  Transmission Date: 20140127
  Serious: Yes (Other)
  Sender: FDA-Public Use
  Company Number: CA-ROCHE-1137238

PATIENT
  Age: 60 Year
  Sex: Male
  Weight: 129.3 kg

DRUGS (10)
  1. AVASTIN [Suspect]
     Indication: GLIOBLASTOMA
     Route: 042
     Dates: start: 20120504, end: 20130218
  2. APO-BISOPROLOL [Concomitant]
  3. ZYLOPRIM [Concomitant]
  4. LEVETIRACETAM [Concomitant]
     Indication: CONVULSION PROPHYLAXIS
  5. ASPIRIN [Concomitant]
     Route: 065
  6. RIVA-SENNA [Concomitant]
     Route: 065
  7. BENADRYL [Concomitant]
     Indication: PREMEDICATION
     Route: 048
     Dates: start: 20120504, end: 20130218
  8. TYLENOL [Concomitant]
     Indication: PREMEDICATION
     Route: 048
     Dates: start: 20120504, end: 20130218
  9. SOLU-MEDROL [Concomitant]
     Indication: PREMEDICATION
     Route: 042
     Dates: start: 20120504, end: 20130218
  10. CEENU [Concomitant]
     Route: 048
     Dates: start: 20121018

REACTIONS (8)
  - Glioblastoma [Not Recovered/Not Resolved]
  - Disease progression [Unknown]
  - Fatigue [Not Recovered/Not Resolved]
  - Heart rate irregular [Unknown]
  - Proteinuria [Unknown]
  - Laboratory test abnormal [Unknown]
  - Platelet count decreased [Unknown]
  - Protein total increased [Not Recovered/Not Resolved]
